FAERS Safety Report 7306503-4 (Version None)
Quarter: 2011Q1

REPORT INFORMATION
  Report Type: 
  Country: None (occurrence: None)
  Receive Date: 20110222
  Receipt Date: 20110218
  Transmission Date: 20110831
  Serious: Yes (Death, Life-Threatening, Hospitalization)
  Sender: FDA-Public Use
  Company Number: UA-TEVA-2010XM22-03-00010

PATIENT
  Sex: Female
  Weight: 100 kg

DRUGS (50)
  1. NEULASTA [Suspect]
     Indication: COLONY STIMULATING FACTOR PROPHYLAXIS
     Dosage: BLINDED XM22 6 MG OR NEULASTA 6 MG
     Route: 058
     Dates: start: 20100630, end: 20100630
  2. MILDRONATUM 10% SOLUTION [Concomitant]
     Indication: PREMEDICATION
     Route: 042
     Dates: start: 20100629, end: 20100629
  3. DEXAMETHASONUM [Concomitant]
     Route: 042
     Dates: start: 20100707, end: 20100707
  4. DEXKETOPROFENUM [Concomitant]
     Indication: ENTEROCOLITIS
     Route: 030
     Dates: start: 20100707, end: 20100707
  5. TIENAM [Concomitant]
     Indication: FEBRILE NEUTROPENIA
     Route: 042
     Dates: start: 20100707, end: 20100707
  6. SODIUM HYDROCARBONATUM 4% SOLUTION [Concomitant]
     Indication: POISONING
     Route: 042
     Dates: start: 20100707, end: 20100708
  7. NEUPOGEN [Concomitant]
     Indication: FEBRILE NEUTROPENIA
     Route: 058
     Dates: start: 20100707, end: 20100707
  8. XM22 PEG-FILGRASTIM [Suspect]
     Indication: COLONY STIMULATING FACTOR PROPHYLAXIS
     Dosage: BLINDED XM22 6 MG OR NEULASTA 6 MG
     Route: 058
     Dates: start: 20100630, end: 20100630
  9. ONDANSETRON [Concomitant]
     Indication: PREMEDICATION
     Route: 042
     Dates: start: 20100629, end: 20100629
  10. SOLUTIO GLUCOSAE 5% [Concomitant]
     Indication: POISONING
     Route: 042
     Dates: start: 20100707, end: 20100707
  11. FLUCONAZOLUM [Concomitant]
     Indication: ANTIFUNGAL PROPHYLAXIS
     Route: 042
     Dates: start: 20100707, end: 20100707
  12. DOFAMINUM [Concomitant]
     Indication: RESUSCITATION
     Route: 042
     Dates: start: 20100707, end: 20100708
  13. RED BLOOD CELLS - PLASMA REDUCES [Concomitant]
     Route: 042
     Dates: start: 20100707, end: 20100707
  14. RIABAL [Concomitant]
     Indication: ENTEROCOLITIS
     Route: 048
     Dates: start: 20100706, end: 20100706
  15. SIMVASTATINUM [Concomitant]
     Indication: MYOCARDIAL ISCHAEMIA
     Route: 048
     Dates: start: 20100630, end: 20100707
  16. MORPHINE [Concomitant]
     Indication: ENTEROCOLITIS
     Route: 030
     Dates: start: 20100707, end: 20100707
  17. GLUTARGINUM [Concomitant]
     Indication: POISONING
     Route: 042
     Dates: start: 20100707, end: 20100707
  18. DROTAVERINE [Concomitant]
     Indication: ENTEROCOLITIS
     Route: 030
     Dates: start: 20100707, end: 20100707
  19. ATROPINI SULFAS [Concomitant]
     Indication: RESUSCITATION
     Route: 042
     Dates: start: 20100708, end: 20100708
  20. SOLUTIO NATRII CHLORIDI 0.9% [Concomitant]
     Route: 042
     Dates: start: 20100708, end: 20100708
  21. RED BLOOD CELLS - PLASMA REDUCES [Concomitant]
     Indication: ANAEMIA
     Route: 042
     Dates: start: 20100707, end: 20100707
  22. HARTMANN'S SOLUTION [Concomitant]
     Indication: PREMEDICATION
     Route: 042
     Dates: start: 20100629, end: 20100629
  23. ONDANSETRON [Concomitant]
     Indication: POISONING
     Route: 042
     Dates: start: 20100707, end: 20100707
  24. HYDROXYETHYLSTARCH SOLUTION [Concomitant]
     Indication: POISONING
     Route: 042
     Dates: start: 20100707, end: 20100707
  25. DOCETAXEL [Suspect]
     Indication: BREAST CANCER FEMALE
     Dates: start: 20100629, end: 20100629
  26. BISOPROLOL [Concomitant]
     Indication: MYOCARDIAL ISCHAEMIA
     Route: 048
     Dates: start: 20050101, end: 20100707
  27. PYRIDOXINUM [Concomitant]
     Indication: PREMEDICATION
     Route: 042
     Dates: start: 20100629, end: 20100629
  28. LOPERAMIDE [Concomitant]
     Indication: ENTEROCOLITIS
     Route: 048
     Dates: start: 20100704, end: 20100706
  29. SPASMALGON [Concomitant]
     Indication: ENTEROCOLITIS
     Route: 042
     Dates: start: 20100707, end: 20100707
  30. SOLUTIO ALBUMINI 10% [Concomitant]
     Indication: POISONING
     Dates: start: 20100707, end: 20100707
  31. REHYDRON [Concomitant]
     Indication: ENTEROCOLITIS
     Route: 048
     Dates: start: 20100706, end: 20100706
  32. DOXORUBICIN [Suspect]
     Indication: BREAST CANCER FEMALE
     Route: 040
     Dates: start: 20100629, end: 20100629
  33. ENALAPRIL [Concomitant]
     Indication: ESSENTIAL HYPERTENSION
     Route: 048
     Dates: start: 20050101, end: 20100706
  34. CARDIOMAGNYL (ASA 75 MG/MGOH 15.2 MG) [Concomitant]
     Indication: MYOCARDIAL ISCHAEMIA
     Route: 048
     Dates: start: 20050101, end: 20100707
  35. FERVEX [Concomitant]
     Indication: FEBRILE NEUTROPENIA
     Route: 048
     Dates: start: 20100706, end: 20100706
  36. PANTOPRAZOLE [Concomitant]
     Indication: GASTRIC ULCER
     Route: 042
     Dates: start: 20100707, end: 20100707
  37. MORPHINE SOLUTION 1% [Concomitant]
     Indication: ENTEROCOLITIS
     Route: 030
     Dates: start: 20100707, end: 20100707
  38. CLEMASTINE FUMARATE [Concomitant]
     Indication: PREMEDICATION
     Route: 030
     Dates: start: 20100629, end: 20100629
  39. ACIDUM ASCORBICUM 10% SOLUTION [Concomitant]
     Indication: PREMEDICATION
     Route: 042
     Dates: start: 20100629, end: 20100629
  40. ACIDUM ASCORBICUM 5% SOLUTION [Concomitant]
     Indication: POISONING
     Route: 042
     Dates: start: 20100707, end: 20100707
  41. HARTMANN'S SOLUTION [Concomitant]
     Indication: POISONING
     Route: 042
     Dates: start: 20100707, end: 20100707
  42. HYDROXYETHYLAMYLUM (STABILISED) SOLUTIO 6% [Concomitant]
     Indication: RESUSCITATION
     Route: 042
     Dates: start: 20100708, end: 20100708
  43. FRESH FROZEN PLASMA [Concomitant]
     Indication: FEBRILE NEUTROPENIA
     Route: 042
     Dates: start: 20100707, end: 20100707
  44. ENAP H (10MG/25MG) [Concomitant]
     Indication: ESSENTIAL HYPERTENSION
     Route: 048
     Dates: start: 20050101, end: 20100706
  45. DEXAMETHASONE [Concomitant]
     Indication: PREMEDICATION
     Route: 048
     Dates: start: 20100628, end: 20100630
  46. DEXAMETHASONUM [Concomitant]
     Indication: POISONING
     Route: 042
     Dates: start: 20100707, end: 20100707
  47. 0.9% SOLUTION SODIUM CHLORIDE [Concomitant]
     Indication: POISONING
     Route: 042
     Dates: start: 20100707, end: 20100707
  48. PAPAVERINE [Concomitant]
     Indication: ENTEROCOLITIS
     Route: 030
     Dates: start: 20100707, end: 20100707
  49. SORBILACT [Concomitant]
     Indication: POISONING
     Route: 042
     Dates: start: 20100707, end: 20100707
  50. SOLUTIO ADRENALINI HYDROCHLORIDI 0.1% [Concomitant]
     Indication: RESUSCITATION
     Dosage: 1 MG EVERY 5 MINUTES
     Route: 042
     Dates: start: 20100708

REACTIONS (1)
  - ENTEROCOLITIS [None]
